FAERS Safety Report 4519754-9 (Version None)
Quarter: 2004Q4

REPORT INFORMATION
  Report Type: 
  Country: None (occurrence: None)
  Receive Date: 20041203
  Receipt Date: 20041203
  Transmission Date: 20050328
  Serious: Yes (Hospitalization)
  Sender: FDA-Public Use
  Company Number: None

PATIENT
  Age: 66 Year
  Sex: Male
  Weight: 73.4827 kg

DRUGS (1)
  1. COUMADIN [Suspect]

REACTIONS (1)
  - HAEMORRHAGE INTRACRANIAL [None]
